FAERS Safety Report 7643921-9 (Version None)
Quarter: 2011Q3

REPORT INFORMATION
  Report Type: 
  Country: None (occurrence: None)
  Receive Date: 20110729
  Receipt Date: 20110728
  Transmission Date: 20111222
  Serious: Yes (Life-Threatening, Hospitalization)
  Sender: FDA-Public Use
  Company Number: HR-PFIZER INC-2011171879

PATIENT
  Age: 63 Year
  Sex: Male

DRUGS (2)
  1. IBUPROFEN [Interacting]
     Indication: RHEUMATOID ARTHRITIS
     Dosage: UNK
     Route: 048
  2. NORVASC [Suspect]
     Indication: HYPERTENSION
     Dosage: UNK

REACTIONS (2)
  - DRUG INTERACTION [None]
  - DUODENAL ULCER HAEMORRHAGE [None]
